FAERS Safety Report 22624875 (Version 1)
Quarter: 2023Q2

REPORT INFORMATION
  Report Type: Spontaneous
  Country: GT (occurrence: GT)
  Receive Date: 20230621
  Receipt Date: 20230621
  Transmission Date: 20230721
  Serious: Yes (Death, Hospitalization)
  Sender: FDA-Public Use
  Company Number: GT-PFIZER INC-202200540050

PATIENT
  Age: 33 Year
  Sex: Female

DRUGS (2)
  1. BOSULIF [Suspect]
     Active Substance: BOSUTINIB MONOHYDRATE
     Indication: Chronic myeloid leukaemia
     Dosage: 5 DF
  2. BOSULIF [Suspect]
     Active Substance: BOSUTINIB MONOHYDRATE
     Dosage: 200 MG

REACTIONS (5)
  - Death [Fatal]
  - Neuropathy peripheral [Unknown]
  - Headache [Unknown]
  - Hypersensitivity [Unknown]
  - Epistaxis [Unknown]

NARRATIVE: CASE EVENT DATE: 20220808
